FAERS Safety Report 5068760-7 (Version None)
Quarter: 2006Q3

REPORT INFORMATION
  Report Type: 
  Country: None (occurrence: None)
  Receive Date: 20060802
  Receipt Date: 20060320
  Transmission Date: 20061208
  Serious: No
  Sender: FDA-Public Use
  Company Number: US-BRISTOL-MYERS SQUIBB COMPANY-13320486

PATIENT
  Age: 62 Year
  Sex: Male
  Weight: 117 kg

DRUGS (7)
  1. COUMADIN [Suspect]
     Indication: THROMBOSIS
     Dates: start: 20060220, end: 20060317
  2. VYTORIN [Concomitant]
  3. INDERAL [Concomitant]
  4. VALIUM [Concomitant]
  5. ATACAND [Concomitant]
  6. ASPIRIN [Concomitant]
  7. VALIUM [Concomitant]

REACTIONS (2)
  - EPISTAXIS [None]
  - INTERNATIONAL NORMALISED RATIO INCREASED [None]
